APPROVED DRUG PRODUCT: KOROSTATIN
Active Ingredient: NYSTATIN
Strength: 100,000 UNITS
Dosage Form/Route: TABLET;VAGINAL
Application: A061718 | Product #001
Applicant: HOLLAND RANTOS CO INC
Approved: Approved Prior to Jan 1, 1982 | RLD: No | RS: No | Type: DISCN